FAERS Safety Report 6859607-4 (Version None)
Quarter: 2010Q3

REPORT INFORMATION
  Report Type: 
  Country: None (occurrence: None)
  Receive Date: 20100719
  Receipt Date: 20080519
  Transmission Date: 20110219
  Serious: No
  Sender: FDA-Public Use
  Company Number: US-PFIZER INC-2008019882

PATIENT
  Age: 57 Year
  Sex: Female

DRUGS (2)
  1. CHANTIX [Suspect]
     Dates: start: 20071210, end: 20080329
  2. FENTANYL [Suspect]

REACTIONS (1)
  - ASTHMA [None]
